FAERS Safety Report 7275865-9 (Version None)
Quarter: 2011Q1

REPORT INFORMATION
  Report Type: 
  Country: None (occurrence: None)
  Receive Date: 20110204
  Receipt Date: 20101026
  Transmission Date: 20110831
  Serious: Yes (Hospitalization, Other)
  Sender: FDA-Public Use
  Company Number: US-BAYER-201024714NA

PATIENT
  Sex: Female
  Weight: 54.422 kg

DRUGS (3)
  1. PROZAC [Concomitant]
     Dosage: 40 MG, UNK
     Route: 048
     Dates: start: 20070101
  2. ABILIFY [Concomitant]
     Indication: ATTENTION DEFICIT/HYPERACTIVITY DISORDER
     Dosage: 10 MG, UNK
     Route: 048
     Dates: start: 20070101
  3. YASMIN [Suspect]
     Indication: ACNE
     Dosage: UNK
     Route: 048
     Dates: start: 20070517, end: 20091210

REACTIONS (10)
  - CHOLELITHIASIS [None]
  - CHEST DISCOMFORT [None]
  - ABDOMINAL PAIN UPPER [None]
  - PANCREATITIS [None]
  - CHEST PAIN [None]
  - CHOLECYSTITIS CHRONIC [None]
  - BILIARY COLIC [None]
  - VOMITING [None]
  - GALLBLADDER INJURY [None]
  - NAUSEA [None]
